FAERS Safety Report 7637481-6 (Version None)
Quarter: 2011Q3

REPORT INFORMATION
  Report Type: 
  Country: None (occurrence: None)
  Receive Date: 20110726
  Receipt Date: 20110715
  Transmission Date: 20111222
  Serious: Yes (Other)
  Sender: FDA-Public Use
  Company Number: PHHY2011US41398

PATIENT
  Sex: Female

DRUGS (5)
  1. GILENYA [Suspect]
     Indication: MULTIPLE SCLEROSIS
     Dosage: 0.5 MG, QD
     Route: 048
     Dates: start: 20110513, end: 20110513
  2. NALTREXONE HYDROCHLORIDE [Concomitant]
     Indication: PAIN
     Dosage: 3 MG, QD
     Route: 048
     Dates: start: 20100101
  3. LAMICTAL [Concomitant]
     Indication: MIGRAINE
     Dosage: UNK UKN, UNK
     Route: 048
     Dates: start: 20080101
  4. WELLBUTRIN [Concomitant]
     Indication: DEPRESSED MOOD
     Dosage: 300 MG, QD
     Route: 048
     Dates: start: 20080101
  5. KLONOPIN [Concomitant]
     Dosage: 0.5 MG, PRN
     Dates: start: 20090101

REACTIONS (2)
  - HYPOTENSION [None]
  - DIZZINESS [None]
